FAERS Safety Report 5838526-6 (Version None)
Quarter: 2008Q3

REPORT INFORMATION
  Report Type: 
  Country: None (occurrence: None)
  Receive Date: 20080808
  Receipt Date: 20080730
  Transmission Date: 20090109
  Serious: Yes (Other)
  Sender: FDA-Public Use
  Company Number: BR-ROCHE-579590

PATIENT
  Sex: Male
  Weight: 81 kg

DRUGS (2)
  1. RIVOTRIL [Suspect]
     Indication: INSOMNIA
     Route: 048
     Dates: start: 20071201
  2. FORADIL [Concomitant]
     Route: 065
     Dates: start: 20040101

REACTIONS (1)
  - DIABETES MELLITUS [None]
